FAERS Safety Report 18938631 (Version 6)
Quarter: 2021Q1

REPORT INFORMATION
  Report Type: Report from Study
  Country: None (occurrence: ES)
  Receive Date: 20210224
  Receipt Date: 20210310
  Transmission Date: 20210420
  Serious: Yes (Other)
  Sender: FDA-Public Use
  Company Number: ES-ABBVIE-21K-144-3786779-00

PATIENT
  Age: 70 Year
  Sex: Male

DRUGS (5)
  1. DUODOPA [Suspect]
     Active Substance: CARBIDOPA\LEVODOPA
     Indication: PARKINSON^S DISEASE
     Route: 050
     Dates: start: 20210214, end: 202102
  2. DUODOPA [Suspect]
     Active Substance: CARBIDOPA\LEVODOPA
     Dosage: MORNING DOSE DECREASED
     Route: 050
     Dates: start: 202102, end: 202102
  3. SEGURIL [Concomitant]
     Active Substance: FUROSEMIDE
     Dosage: HALF DOSE
     Route: 048
     Dates: start: 20210224
  4. SEGURIL [Concomitant]
     Active Substance: FUROSEMIDE
     Indication: OEDEMA PERIPHERAL
     Route: 048
     Dates: start: 202101, end: 20210224
  5. DUODOPA [Suspect]
     Active Substance: CARBIDOPA\LEVODOPA
     Dosage: MD DECREASED TO 7 ML, CONTINUOUS DOSE 2.6, CONTINUOUS DOSE READJUSTED BY INCREASE
     Route: 050
     Dates: start: 20210224

REACTIONS (6)
  - Superinfection [Recovering/Resolving]
  - Cough [Not Recovered/Not Resolved]
  - Nausea [Recovered/Resolved]
  - COVID-19 [Unknown]
  - Vomiting [Unknown]
  - Hypotension [Recovered/Resolved]

NARRATIVE: CASE EVENT DATE: 202102
